FAERS Safety Report 4778629-0 (Version None)
Quarter: 2005Q3

REPORT INFORMATION
  Report Type: 
  Country: None (occurrence: None)
  Receive Date: 20050922
  Receipt Date: 20050913
  Transmission Date: 20060218
  Serious: Yes (Other)
  Sender: FDA-Public Use
  Company Number: 12305

PATIENT
  Sex: Male

DRUGS (4)
  1. CYTARABINE [Suspect]
     Dosage: 100 MG/M2 PER_CYCLE
  2. ETOPOSIDE [Suspect]
  3. DAUNORUBICIN HCL [Suspect]
  4. ALLOPURINOL [Concomitant]

REACTIONS (1)
  - RASH ERYTHEMATOUS [None]
